FAERS Safety Report 15155945 (Version 1)
Quarter: 2018Q3

REPORT INFORMATION
  Report Type: Spontaneous
  Country: GB (occurrence: GB)
  Receive Date: 20180717
  Receipt Date: 20180717
  Transmission Date: 20181010
  Serious: Yes (Hospitalization)
  Sender: FDA-Public Use
  Company Number: GB-US WORLDMEDS, LLC-STA_00019972

PATIENT
  Age: 51 Year
  Sex: Female

DRUGS (3)
  1. ROPINEROLE [Concomitant]
     Active Substance: ROPINIROLE
     Indication: PARKINSON^S DISEASE
     Route: 048
  2. DOMPERIDONE [Concomitant]
     Active Substance: DOMPERIDONE
     Indication: NAUSEA
     Dosage: 20MG TDS
     Route: 048
     Dates: start: 20090115
  3. APOMORPHINE HYDROCHLORIDE [Suspect]
     Active Substance: APOMORPHINE HYDROCHLORIDE
     Indication: PARKINSON^S DISEASE
     Dosage: ~ 90MG DAILY
     Route: 058
     Dates: start: 20090120, end: 20090202

REACTIONS (4)
  - Skin reaction [Recovered/Resolved]
  - Vomiting [Recovered/Resolved]
  - Meningitis aseptic [Recovered/Resolved]
  - Headache [Recovered/Resolved]

NARRATIVE: CASE EVENT DATE: 20090129
